FAERS Safety Report 9158275 (Version 1)
Quarter: 2013Q1

REPORT INFORMATION
  Report Type: Spontaneous
  Country: US (occurrence: US)
  Receive Date: 20130312
  Receipt Date: 20130312
  Transmission Date: 20140127
  Serious: Yes (Hospitalization)
  Sender: FDA-Public Use
  Company Number: US-BAYER-2013-028315

PATIENT
  Age: 44 Year
  Sex: Female
  Weight: 61.24 kg

DRUGS (7)
  1. YAZ [Suspect]
  2. GIANVI [Suspect]
  3. SERTRALINE [Concomitant]
     Dosage: 50 MG, UNK
     Route: 048
  4. VITAMIN D [Concomitant]
     Dosage: 50000 IU, UNK
     Route: 048
  5. ZOLOFT [Concomitant]
  6. ATIVAN [Concomitant]
  7. LORAZEPAM [Concomitant]

REACTIONS (4)
  - Pulmonary embolism [None]
  - Deep vein thrombosis [None]
  - Pelvic venous thrombosis [None]
  - Thrombophlebitis superficial [None]
